FAERS Safety Report 15592674 (Version 1)
Quarter: 2018Q4

REPORT INFORMATION
  Report Type: Report from Study
  Country: None (occurrence: BE)
  Receive Date: 20181106
  Receipt Date: 20181106
  Transmission Date: 20190205
  Serious: Yes (Hospitalization, Other)
  Sender: FDA-Public Use
  Company Number: BE-ABBVIE-18S-013-2536904-00

PATIENT
  Sex: Male

DRUGS (3)
  1. DUODOPA [Suspect]
     Active Substance: CARBIDOPA\LEVODOPA
     Indication: PARKINSON^S DISEASE
     Dosage: MD=5ML;CD=2.3ML/HR DURING 16HRS;ED=1.5ML
     Route: 050
     Dates: start: 20130121, end: 20130601
  2. DUODOPA [Suspect]
     Active Substance: CARBIDOPA\LEVODOPA
     Dosage: DOSES CONTINUOUSLY MONITORED AND ADAPTED
     Route: 050
     Dates: start: 20130601, end: 20170825
  3. DUODOPA [Suspect]
     Active Substance: CARBIDOPA\LEVODOPA
     Dosage: MD=0ML;CD=2ML/HR DURING 16HRS;ED=0.5ML
     Route: 050
     Dates: start: 20170825

REACTIONS (2)
  - Pneumonia aspiration [Unknown]
  - Mechanical ventilation [Unknown]
